FAERS Safety Report 8295191-9 (Version None)
Quarter: 2012Q2

REPORT INFORMATION
  Report Type: 
  Country: None (occurrence: None)
  Receive Date: 20120416
  Receipt Date: 20120331
  Transmission Date: 20120825
  Serious: Yes (Other)
  Sender: FDA-Public Use
  Company Number: 2012AP000957

PATIENT
  Age: 38 Year
  Sex: Female

DRUGS (8)
  1. TOPIRAMATE [Concomitant]
  2. TOXIN [Concomitant]
  3. BUPROPION HCL [Concomitant]
  4. AMITRIPTYLINE HCL [Concomitant]
  5. PROPRANOLOL [Concomitant]
  6. BOTULINUM [Concomitant]
  7. ZOLPIDEM TARTRATE [Suspect]
     Indication: HEADACHE
     Dosage: 5 MG;AF; 10 MG;AF;
  8. VENLAFAXINE [Concomitant]

REACTIONS (5)
  - AUTOMATISM [None]
  - AMNESIA [None]
  - FEELING DRUNK [None]
  - BALANCE DISORDER [None]
  - CLUMSINESS [None]
